FAERS Safety Report 17911282 (Version 2)
Quarter: 2021Q2

REPORT INFORMATION
  Report Type: Spontaneous
  Country: US (occurrence: US)
  Receive Date: 20200618
  Receipt Date: 20210629
  Transmission Date: 20210717
  Serious: Yes (Death)
  Sender: FDA-Public Use
  Company Number: US-TEVA-2020-US-1788656

PATIENT
  Sex: Female

DRUGS (5)
  1. GINKOBA [Concomitant]
     Active Substance: GINKGO
  2. AUSTEDO [Suspect]
     Active Substance: DEUTETRABENAZINE
     Indication: HUNTINGTON^S DISEASE
     Dates: start: 201707
  3. FLORASTOR [Concomitant]
     Active Substance: SACCHAROMYCES CEREVISIAE
  4. AUSTEDO [Suspect]
     Active Substance: DEUTETRABENAZINE
     Dosage: 42 MILLIGRAM DAILY; 12MG + 9MG
  5. ALPRAZOLAM. [Concomitant]
     Active Substance: ALPRAZOLAM

REACTIONS (1)
  - Huntington^s disease [Fatal]
